FAERS Safety Report 7025373-5 (Version None)
Quarter: 2010Q4

REPORT INFORMATION
  Report Type: 
  Country: None (occurrence: None)
  Receive Date: 20101001
  Receipt Date: 20100921
  Transmission Date: 20110411
  Serious: Yes (Other)
  Sender: FDA-Public Use
  Company Number: CHPA2010FI14867

PATIENT
  Sex: Male

DRUGS (3)
  1. NICOTINELL CHEWING GUM FRUIT (NCH) [Suspect]
     Dosage: 12 PER DAY MAXIMUM
     Route: 048
  2. NICOTINELL COATED GUM 2 MG MINT (NCH) [Suspect]
     Dosage: 12 PER DAY MAXIMUM
     Route: 048
  3. NICOTINELL COATED GUM LIQUIRICE (NCH) [Suspect]
     Dosage: 12 PER DAY MAXIMUM
     Route: 048

REACTIONS (3)
  - ENAMEL ANOMALY [None]
  - TOOTH EROSION [None]
  - TOOTH FRACTURE [None]
